FAERS Safety Report 6754178-5 (Version None)
Quarter: 2010Q2

REPORT INFORMATION
  Report Type: 
  Country: None (occurrence: None)
  Receive Date: 20100603
  Receipt Date: 20100525
  Transmission Date: 20101027
  Serious: Yes (Hospitalization, Other)
  Sender: FDA-Public Use
  Company Number: US-ASTRAZENECA-2010SE23865

PATIENT
  Sex: Male

DRUGS (5)
  1. NEXIUM [Suspect]
     Indication: BARRETT'S OESOPHAGUS
     Route: 048
  2. ALPRAZOLAM [Concomitant]
     Indication: NERVOUSNESS
  3. TUMS [Concomitant]
     Indication: ABDOMINAL PAIN UPPER
  4. LUCENTIS [Concomitant]
     Indication: MACULAR DEGENERATION
  5. RANITIDINE [Concomitant]
     Indication: BARRETT'S OESOPHAGUS

REACTIONS (12)
  - ABDOMINAL DISTENSION [None]
  - ABDOMINAL PAIN UPPER [None]
  - ALANINE AMINOTRANSFERASE INCREASED [None]
  - ASPARTATE AMINOTRANSFERASE INCREASED [None]
  - ATRIAL FIBRILLATION [None]
  - BRADYCARDIA [None]
  - DIZZINESS [None]
  - FATIGUE [None]
  - HYPOTENSION [None]
  - SINUS ARREST [None]
  - SYNCOPE [None]
  - WEIGHT DECREASED [None]
